FAERS Safety Report 8395130-6 (Version None)
Quarter: 2012Q2

REPORT INFORMATION
  Report Type: 
  Country: None (occurrence: None)
  Receive Date: 20120530
  Receipt Date: 20120515
  Transmission Date: 20120825
  Serious: Yes (Other)
  Sender: FDA-Public Use
  Company Number: DE-UCBSA-057490

PATIENT
  Sex: Male

DRUGS (2)
  1. KEPPRA [Suspect]
  2. VIMPAT [Suspect]

REACTIONS (3)
  - GRAND MAL CONVULSION [None]
  - PARTIAL SEIZURES [None]
  - SPEECH DISORDER [None]
